FAERS Safety Report 16523158 (Version 1)
Quarter: 2019Q3

REPORT INFORMATION
  Report Type: Spontaneous
  Country: CA (occurrence: CA)
  Receive Date: 20190703
  Receipt Date: 20190703
  Transmission Date: 20191004
  Serious: Yes (Other)
  Sender: FDA-Public Use
  Company Number: CA-AUROBINDO-AUR-APL-2013-08528

PATIENT

DRUGS (13)
  1. CLOBAZAM. [Suspect]
     Active Substance: CLOBAZAM
     Indication: CONFUSIONAL STATE
  2. AURO-LAMOTRIGINE 25 [Suspect]
     Active Substance: LAMOTRIGINE
     Indication: CONFUSIONAL STATE
  3. PHENYTOIN. [Suspect]
     Active Substance: PHENYTOIN
     Indication: STATUS EPILEPTICUS
     Dosage: UNK
     Route: 065
  4. CARBAMAZEPINE. [Suspect]
     Active Substance: CARBAMAZEPINE
     Indication: CONFUSIONAL STATE
  5. PHENYTOIN. [Suspect]
     Active Substance: PHENYTOIN
     Indication: GENERALISED TONIC-CLONIC SEIZURE
  6. CARBAMAZEPINE. [Suspect]
     Active Substance: CARBAMAZEPINE
     Indication: STATUS EPILEPTICUS
     Dosage: UNK
     Route: 065
  7. PHENYTOIN. [Suspect]
     Active Substance: PHENYTOIN
     Indication: CONFUSIONAL STATE
  8. VALPROIC ACID. [Suspect]
     Active Substance: VALPROIC ACID
     Indication: CONFUSIONAL STATE
  9. ACYCLOVIR. [Concomitant]
     Active Substance: ACYCLOVIR
     Indication: SEIZURE
     Dosage: UNK
     Route: 065
  10. ACYCLOVIR. [Concomitant]
     Active Substance: ACYCLOVIR
     Indication: CONFUSIONAL STATE
  11. AURO-LAMOTRIGINE 25 [Suspect]
     Active Substance: LAMOTRIGINE
     Indication: STATUS EPILEPTICUS
     Dosage: UNK
     Route: 065
  12. VALPROIC ACID. [Suspect]
     Active Substance: VALPROIC ACID
     Indication: STATUS EPILEPTICUS
     Dosage: UNK
     Route: 065
  13. CLOBAZAM. [Suspect]
     Active Substance: CLOBAZAM
     Indication: STATUS EPILEPTICUS
     Dosage: UNK
     Route: 065

REACTIONS (2)
  - Drug ineffective [Unknown]
  - Status epilepticus [Unknown]
